FAERS Safety Report 24366970 (Version 1)
Quarter: 2024Q3

REPORT INFORMATION
  Report Type: Spontaneous
  Country: TW (occurrence: TW)
  Receive Date: 20240926
  Receipt Date: 20240926
  Transmission Date: 20241017
  Serious: Yes (Other)
  Sender: KOWA PHARM
  Company Number: TW-KOWA-24JP002325AA

PATIENT

DRUGS (2)
  1. LIVALO [Suspect]
     Active Substance: PITAVASTATIN CALCIUM
     Indication: Product used for unknown indication
     Dosage: UNK, UNK
     Route: 048
  2. EZETIMIBE [Concomitant]
     Active Substance: EZETIMIBE
     Indication: Product used for unknown indication
     Dosage: UNK, UNK
     Route: 048

REACTIONS (28)
  - Haemorrhagic stroke [Unknown]
  - Haemorrhagic stroke [Unknown]
  - Haemorrhagic stroke [Unknown]
  - Haemorrhagic stroke [Unknown]
  - Haemorrhagic stroke [Unknown]
  - Haemorrhagic stroke [Unknown]
  - Haemorrhagic stroke [Unknown]
  - Haemorrhagic stroke [Unknown]
  - Haemorrhagic stroke [Unknown]
  - Haemorrhagic stroke [Unknown]
  - Haemorrhagic stroke [Unknown]
  - Haemorrhagic stroke [Unknown]
  - Haemorrhagic stroke [Unknown]
  - Haemorrhagic stroke [Unknown]
  - Haemorrhagic stroke [Unknown]
  - Haemorrhagic stroke [Unknown]
  - Haemorrhagic stroke [Unknown]
  - Haemorrhagic stroke [Unknown]
  - Haemorrhagic stroke [Unknown]
  - Haemorrhagic stroke [Unknown]
  - Haemorrhagic stroke [Unknown]
  - Haemorrhagic stroke [Unknown]
  - Haemorrhagic stroke [Unknown]
  - Haemorrhagic stroke [Unknown]
  - Haemorrhagic stroke [Unknown]
  - Haemorrhagic stroke [Unknown]
  - Haemorrhagic stroke [Unknown]
  - Haemorrhagic stroke [Unknown]
